FAERS Safety Report 4490837-5 (Version None)
Quarter: 2004Q4

REPORT INFORMATION
  Report Type: 
  Country: None (occurrence: None)
  Receive Date: 20041027
  Receipt Date: 20041019
  Transmission Date: 20050328
  Serious: Yes (Life-Threatening)
  Sender: FDA-Public Use
  Company Number: CA-2004-033868

PATIENT
  Age: 60 Year
  Sex: Female

DRUGS (11)
  1. FLUDARA [Suspect]
     Indication: CHRONIC LYMPHOCYTIC LEUKAEMIA
     Dosage: SEE IMAGE
     Route: 042
     Dates: start: 20020128, end: 20020130
  2. FLUDARA [Suspect]
     Indication: CHRONIC LYMPHOCYTIC LEUKAEMIA
     Dosage: SEE IMAGE
     Route: 042
     Dates: start: 20020201, end: 20020227
  3. CYCLOPHOSPHAMIDE [Suspect]
     Indication: CHRONIC LYMPHOCYTIC LEUKAEMIA
     Dosage: SEE IMAGE
     Route: 042
     Dates: start: 20020128, end: 20020130
  4. CYCLOPHOSPHAMIDE [Suspect]
     Indication: CHRONIC LYMPHOCYTIC LEUKAEMIA
     Dosage: SEE IMAGE
     Route: 042
     Dates: start: 20020201, end: 20020227
  5. GENASENSE [Suspect]
     Indication: CHRONIC LYMPHOCYTIC LEUKAEMIA
     Dosage: 195 MG/D, D1 TO 7 Q28 DAYS, INTRAVENOUS
     Route: 042
     Dates: start: 20020124, end: 20020228
  6. ACYCLOVIR [Concomitant]
  7. SULFAMETHOXAZOLE + TRIMETHOPRIM [Concomitant]
  8. ATENOLOL [Concomitant]
  9. PREMARIN [Concomitant]
  10. TRAZODONE HCL [Concomitant]
  11. TRANEXAMIC ACID (TRANEXAMIC ACID) [Concomitant]

REACTIONS (2)
  - HAEMATURIA [None]
  - IDIOPATHIC THROMBOCYTOPENIC PURPURA [None]
